FAERS Safety Report 6116906-1 (Version None)
Quarter: 2009Q1

REPORT INFORMATION
  Report Type: 
  Country: None (occurrence: None)
  Receive Date: 20090314
  Receipt Date: 20090204
  Transmission Date: 20090719
  Serious: No
  Sender: FDA-Public Use
  Company Number: PR-ABBOTT-09P-131-0501937-00

PATIENT
  Sex: Female
  Weight: 45.4 kg

DRUGS (5)
  1. HUMIRA [Suspect]
     Indication: RHEUMATOID ARTHRITIS
     Dosage: 1 PEN
     Route: 058
     Dates: start: 20070101, end: 20090101
  2. ENALAPRIL [Concomitant]
     Indication: HYPERTENSION
     Route: 048
  3. PLAVIX [Concomitant]
     Indication: CARDIAC DISORDER
     Route: 048
  4. METHOTREXATE [Concomitant]
     Indication: RHEUMATOID ARTHRITIS
     Route: 048
  5. FOLIC ACID [Concomitant]
     Indication: RHEUMATOID ARTHRITIS
     Route: 048

REACTIONS (1)
  - INJECTION SITE REACTION [None]
